FAERS Safety Report 4865360-6 (Version None)
Quarter: 2005Q4

REPORT INFORMATION
  Report Type: 
  Country: None (occurrence: None)
  Receive Date: 20051223
  Receipt Date: 20051214
  Transmission Date: 20060501
  Serious: Yes (Hospitalization, Other)
  Sender: FDA-Public Use
  Company Number: US-ABBOTT-05P-163-0319632-00

PATIENT
  Sex: Female
  Weight: 136.4 kg

DRUGS (1)
  1. HUMIRA [Suspect]
     Indication: RHEUMATOID ARTHRITIS
     Route: 058
     Dates: start: 20030101

REACTIONS (4)
  - GASTROINTESTINAL INFECTION [None]
  - NEPHROLITHIASIS [None]
  - OVARIAN ABSCESS [None]
  - VAGINAL HAEMORRHAGE [None]
